FAERS Safety Report 24446971 (Version 2)
Quarter: 2025Q1

REPORT INFORMATION
  Report Type: Spontaneous
  Country: JP (occurrence: JP)
  Receive Date: 20241016
  Receipt Date: 20250222
  Transmission Date: 20250409
  Serious: Yes (Death)
  Sender: UCB
  Company Number: JP-UCBSA-2024052337

PATIENT
  Age: 32 Year
  Sex: Male

DRUGS (1)
  1. LEVETIRACETAM [Suspect]
     Active Substance: LEVETIRACETAM
     Indication: Epilepsy
     Route: 048

REACTIONS (2)
  - Pineal germinoma [Fatal]
  - Abdominal distension [Unknown]
